FAERS Safety Report 8384193-X (Version None)
Quarter: 2012Q2

REPORT INFORMATION
  Report Type: 
  Country: None (occurrence: None)
  Receive Date: 20120524
  Receipt Date: 20120514
  Transmission Date: 20120825
  Serious: Yes (Congenital Anomaly)
  Sender: FDA-Public Use
  Company Number: DE-TEVA-338763GER

PATIENT
  Sex: Male

DRUGS (6)
  1. HYDROXYCHLOROQUINE SULFATE [Concomitant]
     Route: 064
  2. ALENDRONATE SODIUM [Concomitant]
     Route: 064
  3. MYCOPHENOLATE MOFETIL [Suspect]
     Route: 064
  4. PREDNISONE [Concomitant]
     Route: 064
  5. AZATHIOPRINE [Concomitant]
     Route: 064
  6. ASPIRIN [Concomitant]
     Route: 064

REACTIONS (12)
  - BRACHYCEPHALY [None]
  - HYPERTELORISM OF ORBIT [None]
  - MICROTIA [None]
  - EXTERNAL AUDITORY CANAL ATRESIA [None]
  - OLFACTORY NERVE DISORDER [None]
  - MICROGNATHIA [None]
  - CAMPTODACTYLY CONGENITAL [None]
  - SKIN HYPOPLASIA [None]
  - CONGENITAL ARTERIAL MALFORMATION [None]
  - OESOPHAGEAL ATRESIA [None]
  - CLINODACTYLY [None]
  - COLOBOMA [None]
